FAERS Safety Report 24629699 (Version 1)
Quarter: 2024Q4

REPORT INFORMATION
  Report Type: Report from Study
  Country: VN (occurrence: VN)
  Receive Date: 20241118
  Receipt Date: 20241118
  Transmission Date: 20250114
  Serious: Yes (Other)
  Sender: ALEXION PHARMACEUTICALS
  Company Number: VN-AstraZeneca-CH-00745304A

PATIENT

DRUGS (1)
  1. TAGRISSO [Suspect]
     Active Substance: OSIMERTINIB
     Dosage: 80 MILLIGRAM, QD

REACTIONS (2)
  - Altered state of consciousness [Unknown]
  - Muscular weakness [Unknown]
